FAERS Safety Report 4610081-8 (Version None)
Quarter: 2005Q1

REPORT INFORMATION
  Report Type: 
  Country: None (occurrence: None)
  Receive Date: 20050315
  Receipt Date: 20050304
  Transmission Date: 20050727
  Serious: Yes (Hospitalization, Disabling)
  Sender: FDA-Public Use
  Company Number: GXKR2005US00691

PATIENT
  Age: 13 Year
  Sex: Male

DRUGS (3)
  1. DIVALPROEX SODIUM [Suspect]
     Indication: PSYCHOTIC DISORDER
  2. RISPERIDONE [Suspect]
     Indication: PSYCHOTIC DISORDER
  3. CLONAZEPAM [Suspect]

REACTIONS (3)
  - DIABETES MELLITUS INSULIN-DEPENDENT [None]
  - LETHARGY [None]
  - WEIGHT INCREASED [None]
